FAERS Safety Report 9094621 (Version 2)
Quarter: 2013Q1

REPORT INFORMATION
  Report Type: Spontaneous
  Country: CO (occurrence: CO)
  Receive Date: 20130204
  Receipt Date: 20130214
  Transmission Date: 20140127
  Serious: Yes (Other)
  Sender: FDA-Public Use
  Company Number: CO-VERTEX PHARMACEUTICALS INC.-2013-001509

PATIENT
  Age: 59 Year
  Sex: Female

DRUGS (3)
  1. INCIVO [Suspect]
     Indication: HEPATITIS C
     Dosage: 750 MG, TID
     Route: 048
     Dates: start: 20121123
  2. RIBAVIRIN [Concomitant]
     Dosage: UNK
     Route: 065
  3. PEGINTERFERON ALFA [Concomitant]
     Dosage: UNK
     Route: 065

REACTIONS (5)
  - Eosinophilic cellulitis [Not Recovered/Not Resolved]
  - Acute febrile neutrophilic dermatosis [Unknown]
  - Face oedema [Unknown]
  - Rash [Unknown]
  - Pruritus [Unknown]
